FAERS Safety Report 9770488 (Version 1)
Quarter: 2013Q4

REPORT INFORMATION
  Report Type: Spontaneous
  Country: IE (occurrence: IE)
  Receive Date: 20131218
  Receipt Date: 20131218
  Transmission Date: 20140711
  Serious: Yes (Life-Threatening)
  Sender: FDA-Public Use
  Company Number: IE-AMGEN-IRLSP2013087933

PATIENT
  Age: 60 Year
  Sex: Male

DRUGS (1)
  1. ARANESP [Suspect]
     Indication: BLOOD COUNT ABNORMAL
     Dosage: 200 MUG, QWK
     Route: 065
     Dates: start: 2004, end: 2009

REACTIONS (3)
  - Erectile dysfunction [Not Recovered/Not Resolved]
  - Myelodysplastic syndrome [Not Recovered/Not Resolved]
  - Unevaluable event [Not Recovered/Not Resolved]
